FAERS Safety Report 17641001 (Version 1)
Quarter: 2020Q2

REPORT INFORMATION
  Report Type: Spontaneous
  Country: CA (occurrence: CA)
  Receive Date: 20200407
  Receipt Date: 20200407
  Transmission Date: 20200713
  Serious: Yes (Other)
  Sender: FDA-Public Use
  Company Number: CA-PURDUE PHARMA-CAN-2020-0010807

PATIENT
  Sex: Female

DRUGS (2)
  1. METHAMPHETAMINE [Suspect]
     Active Substance: METHAMPHETAMINE
     Indication: DRUG DEPENDENCE
     Dosage: UNK
     Route: 065
  2. MORPHINE SULFATE. [Suspect]
     Active Substance: MORPHINE SULFATE
     Indication: DRUG DEPENDENCE
     Dosage: UNK
     Route: 065

REACTIONS (5)
  - Judgement impaired [Unknown]
  - Substance dependence [Unknown]
  - Substance abuse [Unknown]
  - Memory impairment [Unknown]
  - Aggression [Unknown]
